FAERS Safety Report 7590132-1 (Version None)
Quarter: 2011Q3

REPORT INFORMATION
  Report Type: 
  Country: None (occurrence: None)
  Receive Date: 20110705
  Receipt Date: 20110627
  Transmission Date: 20111222
  Serious: Yes (Hospitalization)
  Sender: FDA-Public Use
  Company Number: B0730500A

PATIENT
  Age: 92 Year
  Sex: Male

DRUGS (10)
  1. ATENOLOL [Concomitant]
     Route: 065
  2. PREDNISONE [Concomitant]
     Route: 065
  3. UNIKET RETARD [Concomitant]
     Route: 065
  4. PROMACTA [Suspect]
     Indication: IDIOPATHIC THROMBOCYTOPENIC PURPURA
     Dosage: 50MG PER DAY
     Route: 048
     Dates: start: 20110418
  5. RANITIDINE [Concomitant]
     Route: 065
  6. LEVOTHYROXINE SODIUM [Concomitant]
     Indication: HYPOTHYROIDISM
     Route: 065
  7. MANIDIPINE [Concomitant]
     Route: 065
  8. ATORVASTATIN [Concomitant]
     Route: 065
  9. ASPIRIN [Concomitant]
     Route: 065
  10. TAMSULOSINE [Concomitant]
     Route: 065

REACTIONS (1)
  - GUILLAIN-BARRE SYNDROME [None]
